FAERS Safety Report 7486085-7 (Version None)
Quarter: 2011Q2

REPORT INFORMATION
  Report Type: 
  Country: None (occurrence: None)
  Receive Date: 20110517
  Receipt Date: 20110513
  Transmission Date: 20111010
  Serious: Yes (Hospitalization)
  Sender: FDA-Public Use
  Company Number: US-ABBOTT-11P-163-0725585-00

PATIENT
  Sex: Male
  Weight: 176 kg

DRUGS (4)
  1. NIMBEX [Suspect]
     Indication: NEUROMUSCULAR BLOCKING THERAPY
     Dosage: 200MG/100ML. TOOK 24 DOSES TOTAL.
     Dates: start: 20110421, end: 20110428
  2. VANCOMYCIN [Concomitant]
     Indication: PRODUCT USED FOR UNKNOWN INDICATION
  3. ZOSYN [Concomitant]
     Indication: PRODUCT USED FOR UNKNOWN INDICATION
  4. LASIX [Concomitant]
     Indication: PRODUCT USED FOR UNKNOWN INDICATION

REACTIONS (1)
  - PARALYSIS [None]
